FAERS Safety Report 25643908 (Version 1)
Quarter: 2025Q3

REPORT INFORMATION
  Report Type: Spontaneous
  Country: US (occurrence: None)
  Receive Date: 20250804
  Receipt Date: 20250804
  Transmission Date: 20251021
  Serious: Yes (Death)
  Sender: FDA-CTU
  Company Number: None

PATIENT
  Age: 61 Year
  Sex: Male

DRUGS (5)
  1. CAPECITABINE [Suspect]
     Active Substance: CAPECITABINE
     Indication: Neuroendocrine tumour
     Dosage: 1500 MG TWICE A DAY ORAL
     Route: 048
     Dates: start: 20240523, end: 20250705
  2. GABAPENTIN [Concomitant]
     Active Substance: GABAPENTIN
  3. OXYCODONE [Concomitant]
     Active Substance: OXYCODONE
  4. Multivitamin tabs [Concomitant]
  5. TEMOZOLOMIDE [Concomitant]
     Active Substance: TEMOZOLOMIDE

REACTIONS (1)
  - Neoplasm progression [None]

NARRATIVE: CASE EVENT DATE: 20250705
